FAERS Safety Report 8462509-3 (Version None)
Quarter: 2012Q2

REPORT INFORMATION
  Report Type: 
  Country: None (occurrence: None)
  Receive Date: 20120625
  Receipt Date: 20120611
  Transmission Date: 20120825
  Serious: Yes (Life-Threatening, Hospitalization)
  Sender: FDA-Public Use
  Company Number: PL-MYLANLABS-2012S1012059

PATIENT
  Age: 45 Year
  Sex: Female

DRUGS (1)
  1. DIGOXIN [Suspect]
     Indication: SUICIDE ATTEMPT
     Dosage: 0.25MG/TABLET
     Route: 048

REACTIONS (9)
  - SUICIDE ATTEMPT [None]
  - OVERDOSE [None]
  - NAUSEA [None]
  - VOMITING [None]
  - ARRHYTHMIA [None]
  - DIZZINESS [None]
  - PSYCHOMOTOR RETARDATION [None]
  - HEADACHE [None]
  - TOXICITY TO VARIOUS AGENTS [None]
